FAERS Safety Report 6392623-8 (Version None)
Quarter: 2009Q4

REPORT INFORMATION
  Report Type: 
  Country: None (occurrence: None)
  Receive Date: 20091007
  Receipt Date: 20090818
  Transmission Date: 20100525
  Serious: No
  Sender: FDA-Public Use
  Company Number: US-ALLERGAN-0909739US

PATIENT
  Age: 53 Year
  Sex: Female
  Weight: 54.422 kg

DRUGS (1)
  1. LATISSE [Suspect]
     Indication: GROWTH OF EYELASHES
     Dosage: UNK
     Route: 061
     Dates: start: 20090625, end: 20090702

REACTIONS (4)
  - EYE SWELLING [None]
  - EYELID DISORDER [None]
  - PRURITUS [None]
  - SCLERAL DISORDER [None]
